FAERS Safety Report 15378753 (Version 1)
Quarter: 2018Q3

REPORT INFORMATION
  Report Type: Spontaneous
  Country: US (occurrence: US)
  Receive Date: 20180906
  Receipt Date: 20180906
  Transmission Date: 20181010
  Serious: Yes (Other)
  Sender: FDA-Public Use
  Company Number: None

PATIENT
  Age: 59 Year
  Sex: Male
  Weight: 113.4 kg

DRUGS (4)
  1. IC VALSARTAN 160MG TABLET [Suspect]
     Active Substance: VALSARTAN
     Dosage: ?          QUANTITY:1 DF DOSAGE FORM;?
     Route: 048
     Dates: start: 20141130, end: 20180820
  2. PHILLIPS COLON HEALTH PROBIOTICS [Concomitant]
  3. IC LOSARTAN POTASSIUM [Concomitant]
     Active Substance: LOSARTAN POTASSIUM
  4. ALPRAZOLAM. [Concomitant]
     Active Substance: ALPRAZOLAM

REACTIONS (6)
  - Dizziness [None]
  - Dry eye [None]
  - Epistaxis [None]
  - Diarrhoea [None]
  - Nasal septum deviation [None]
  - Haemoptysis [None]

NARRATIVE: CASE EVENT DATE: 20141130
